FAERS Safety Report 10581351 (Version 1)
Quarter: 2014Q4

REPORT INFORMATION
  Report Type: Spontaneous
  Country: US (occurrence: None)
  Receive Date: 20141112
  Receipt Date: 20141112
  Transmission Date: 20150529
  Serious: Yes (Hospitalization)
  Sender: FDA-Public Use
  Company Number: None

PATIENT
  Age: 65 Year
  Sex: Female
  Weight: 48.94 kg

DRUGS (13)
  1. PAMIDRONATE DISODIUM (AREDIA IV) [Concomitant]
  2. ACYCLOVIR (ZOVIRAX) [Concomitant]
  3. CYCLOPHOSPHAMIDE (CYTOXAN) [Concomitant]
  4. POMALIDOMIDE [Concomitant]
     Active Substance: POMALIDOMIDE
  5. CYCLOPHOSPHAMIDE. [Suspect]
     Active Substance: CYCLOPHOSPHAMIDE
     Indication: PLASMA CELL MYELOMA
     Dosage: 50 MG BID D1-21
     Route: 048
     Dates: start: 20141107
  6. TRAMADOL (ULTRAM) [Concomitant]
  7. ASPIRIN. [Concomitant]
     Active Substance: ASPIRIN
  8. DEXAMETHASONE (DECADRON) [Concomitant]
  9. LEVOCARNITINE. [Concomitant]
     Active Substance: LEVOCARNITINE
  10. POMALIDOMIDE [Suspect]
     Active Substance: POMALIDOMIDE
     Indication: PLASMA CELL MYELOMA
     Dosage: 4 MG, D1-21
     Route: 048
     Dates: start: 20141107
  11. GABAPENTIN (NEURONTIN) [Concomitant]
  12. CHOLECALCIFEROL, VITAMIN D3 [Concomitant]
  13. METOPROLOL SUCCINATE XL (TOPROL XL) [Concomitant]

REACTIONS (2)
  - Bronchitis [None]
  - Dyspnoea [None]

NARRATIVE: CASE EVENT DATE: 20141109
